FAERS Safety Report 9475160 (Version 1)
Quarter: 2013Q3

REPORT INFORMATION
  Report Type: Spontaneous
  Country: GB (occurrence: GB)
  Receive Date: 20130824
  Receipt Date: 20130824
  Transmission Date: 20140515
  Serious: Yes (Other)
  Sender: FDA-Public Use
  Company Number: PHHY2013GB089242

PATIENT
  Sex: 0

DRUGS (1)
  1. AMLODIPINE [Suspect]
     Dosage: 5 MG, UNK

REACTIONS (1)
  - Muscle tightness [Unknown]
